FAERS Safety Report 22350920 (Version 1)
Quarter: 2023Q2

REPORT INFORMATION
  Report Type: Spontaneous
  Country: US (occurrence: US)
  Receive Date: 20230522
  Receipt Date: 20230522
  Transmission Date: 20230721
  Serious: Yes (Other)
  Sender: FDA-Public Use
  Company Number: US-BRAINTREE LABORATORIES, INC.-2023BTE00332

PATIENT
  Age: 75 Year
  Sex: Male

DRUGS (2)
  1. GOLYTELY [Suspect]
     Active Substance: POLYETHYLENE GLYCOL 3350\POTASSIUM CHLORIDE\SODIUM BICARBONATE\SODIUM CHLORIDE\SODIUM SULFATE
     Indication: Colonoscopy
     Dosage: UNK
     Dates: start: 20230503, end: 20230504
  2. DEVICE [Suspect]
     Active Substance: DEVICE
     Dosage: UNK

REACTIONS (2)
  - Chemical burn of genitalia [Not Recovered/Not Resolved]
  - Wrong technique in product usage process [Recovered/Resolved]

NARRATIVE: CASE EVENT DATE: 20230501
